FAERS Safety Report 16932767 (Version 1)
Quarter: 2019Q4

REPORT INFORMATION
  Report Type: Report from Study
  Country: US (occurrence: US)
  Receive Date: 20191018
  Receipt Date: 20191018
  Transmission Date: 20200122
  Serious: Yes (Other)
  Sender: FDA-Public Use
  Company Number: US-ACADIA PHARMACEUTICALS INC.-ACA-2019-014315

PATIENT
  Age: 49 Year
  Sex: Female
  Weight: 46 kg

DRUGS (6)
  1. CARBIDOPA/LEVODOPA [Concomitant]
     Active Substance: CARBIDOPA\LEVODOPA
     Indication: PRODUCT USED FOR UNKNOWN INDICATION
  2. NUPLAZID [Suspect]
     Active Substance: PIMAVANSERIN TARTRATE
     Indication: HALLUCINATION
     Dosage: 10 MG, QD
     Route: 048
     Dates: start: 201910
  3. BENZTROPINE. [Concomitant]
     Active Substance: BENZTROPINE
     Indication: PRODUCT USED FOR UNKNOWN INDICATION
  4. NUPLAZID [Suspect]
     Active Substance: PIMAVANSERIN TARTRATE
     Indication: DELUSION
  5. NUPLAZID [Suspect]
     Active Substance: PIMAVANSERIN TARTRATE
     Indication: PARKINSON^S DISEASE PSYCHOSIS
     Dosage: 5 MG, QD (HALF OF 10 MG TABLET ONCE DAILY)
     Route: 048
     Dates: start: 20190930, end: 20191005
  6. ZYPREXA [Suspect]
     Active Substance: OLANZAPINE
     Indication: PRODUCT USED FOR UNKNOWN INDICATION
     Dosage: 7.5 MG HALF

REACTIONS (5)
  - Tardive dyskinesia [Recovered/Resolved]
  - Tremor [Recovered/Resolved]
  - Prescribed underdose [Unknown]
  - Product prescribing error [Unknown]
  - Exophthalmos [Recovered/Resolved]

NARRATIVE: CASE EVENT DATE: 20191004
